FAERS Safety Report 21976330 (Version 1)
Quarter: 2023Q1

REPORT INFORMATION
  Report Type: Spontaneous
  Country: US (occurrence: US)
  Receive Date: 20230210
  Receipt Date: 20230210
  Transmission Date: 20230417
  Serious: Yes (Other)
  Sender: FDA-Public Use
  Company Number: US-CELLTRION INC.-2023US002930

PATIENT

DRUGS (3)
  1. INFLECTRA [Suspect]
     Active Substance: INFLIXIMAB-DYYB
     Indication: Iridocyclitis
  2. INFLECTRA [Suspect]
     Active Substance: INFLIXIMAB-DYYB
     Indication: Spinal osteoarthritis
  3. INFLECTRA [Suspect]
     Active Substance: INFLIXIMAB-DYYB
     Indication: Radiculopathy

REACTIONS (4)
  - Iridocyclitis [Unknown]
  - Spinal osteoarthritis [Unknown]
  - Radiculopathy [Unknown]
  - Off label use [Unknown]
